FAERS Safety Report 7997002-5 (Version None)
Quarter: 2011Q4

REPORT INFORMATION
  Report Type: 
  Country: None (occurrence: None)
  Receive Date: 20111221
  Receipt Date: 20111215
  Transmission Date: 20120403
  Serious: Yes (Life-Threatening, Hospitalization, Other)
  Sender: FDA-Public Use
  Company Number: PHHY2011BR103171

PATIENT
  Sex: Female

DRUGS (10)
  1. RASILEZ [Suspect]
     Dosage: 300 MG
  2. GLYBURIDE [Concomitant]
     Dosage: TWO TABLETS IN THE MORNING, ONE IN THE AFTERNOON AND ONE AT NIGHT.
  3. GALVUS [Suspect]
     Indication: DIABETES MELLITUS
     Dosage: 50 MG, ONE TABLET A DAY
  4. NIMESULIDE [Concomitant]
     Indication: BONE PAIN
     Dosage: 1 DF, UNK
  5. DIPYRONE INJ [Concomitant]
  6. DIOVAN HCT [Suspect]
     Indication: HYPERTENSION
     Dosage: UNK DF (160/12.5MG)
  7. TANDRILAX [Concomitant]
  8. HIDRION [Concomitant]
     Indication: BLOOD PRESSURE DECREASED
     Dosage: ONE TABLET A DAY
  9. PANTOPRAZOLE SODIUM MEDLEY [Concomitant]
     Dosage: ONE TABLET A DAY
  10. COMBIRON B 12 [Concomitant]
     Indication: ANAEMIA
     Dosage: ONE TABLET A DAY

REACTIONS (9)
  - GAIT DISTURBANCE [None]
  - BONE PAIN [None]
  - INTERVERTEBRAL DISC PROTRUSION [None]
  - MALAISE [None]
  - GASTRIC HAEMORRHAGE [None]
  - BLOOD GLUCOSE INCREASED [None]
  - OSTEOARTHRITIS [None]
  - RENAL IMPAIRMENT [None]
  - PAIN [None]
